FAERS Safety Report 16701873 (Version 1)
Quarter: 2019Q3

REPORT INFORMATION
  Report Type: Spontaneous
  Country: CL (occurrence: CL)
  Receive Date: 20190717
  Receipt Date: 20190717
  Transmission Date: 20191004
  Serious: No
  Sender: FDA-Public Use
  Company Number: None

PATIENT
  Age: 23 Year
  Sex: Female
  Weight: 57 kg

DRUGS (3)
  1. IRON [Concomitant]
     Active Substance: IRON
  2. CLARITHROMYCIN 500MG [Suspect]
     Active Substance: CLARITHROMYCIN
     Indication: BRONCHITIS
     Dosage: ?          QUANTITY:1 DF DOSAGE FORM;?
     Route: 048
     Dates: start: 20190715, end: 20190717
  3. SIBILLA CONTRACEPTIVE PILLS [Concomitant]

REACTIONS (3)
  - Epistaxis [None]
  - Iron deficiency anaemia [None]
  - Polycystic ovaries [None]

NARRATIVE: CASE EVENT DATE: 20190716
